FAERS Safety Report 23189983 (Version 3)
Quarter: 2024Q4

REPORT INFORMATION
  Report Type: Report from Study
  Country: JP (occurrence: JP)
  Receive Date: 20231116
  Receipt Date: 20241223
  Transmission Date: 20250114
  Serious: Yes (Death, Hospitalization)
  Sender: ABBVIE
  Company Number: JP-ABBVIE-5492678

PATIENT
  Age: 87 Year
  Sex: Male
  Weight: 53 kg

DRUGS (3)
  1. RINVOQ [Suspect]
     Active Substance: UPADACITINIB
     Indication: Rheumatoid arthritis
     Dosage: FORM STRENGTH: 7.5 MG
     Route: 048
     Dates: start: 20210323, end: 20221109
  2. RINVOQ [Suspect]
     Active Substance: UPADACITINIB
     Indication: Rheumatoid arthritis
     Dosage: 15 MILLIGRAM
     Route: 048
     Dates: end: 20241109
  3. PREDNISOLONE [Concomitant]
     Active Substance: PREDNISOLONE
     Indication: Rheumatoid arthritis
     Dosage: 2 MILLIGRAM

REACTIONS (2)
  - Gastric cancer [Fatal]
  - Urinary tract infection [Recovering/Resolving]

NARRATIVE: CASE EVENT DATE: 20221005
